FAERS Safety Report 8566642 (Version 2)
Quarter: 2013Q1

REPORT INFORMATION
  Report Type: Spontaneous
  Country: US (occurrence: US)
  Receive Date: 20120517
  Receipt Date: 20130213
  Transmission Date: 20140127
  Serious: Yes (Other)
  Sender: FDA-Public Use
  Company Number: US-ASTRAZENECA-2012SE29826

PATIENT
  Age: 32 Year
  Sex: Male

DRUGS (2)
  1. CRESTOR [Suspect]
     Route: 048
  2. CRESTOR [Suspect]
     Route: 048

REACTIONS (7)
  - Myocardial infarction [Unknown]
  - Epistaxis [Unknown]
  - Mass [Recovered/Resolved]
  - Blood pressure increased [Unknown]
  - Blood cholesterol increased [Unknown]
  - Intentional drug misuse [Unknown]
  - Drug dispensing error [Unknown]
